FAERS Safety Report 11275348 (Version 1)
Quarter: 2015Q2

REPORT INFORMATION
  Report Type: Spontaneous
  Country: US (occurrence: None)
  Receive Date: 20150625
  Receipt Date: 20150625
  Transmission Date: 20150821
  Serious: No
  Sender: FDA-Public Use
  Company Number: A-NJ2015-116149

PATIENT
  Age: 63 Year
  Sex: Female

DRUGS (5)
  1. LASIX [Concomitant]
     Active Substance: FUROSEMIDE
  2. OXYGEN. [Concomitant]
     Active Substance: OXYGEN
  3. OPSUMIT [Suspect]
     Active Substance: MACITENTAN
     Indication: PULMONARY ARTERIAL HYPERTENSION
     Route: 048
     Dates: start: 201502
  4. SILDENAFIL (SILDENAFIL CITRATE) [Concomitant]
     Active Substance: SILDENAFIL CITRATE
  5. POTASSIUM [Concomitant]
     Active Substance: POTASSIUM

REACTIONS (9)
  - Diarrhoea [None]
  - Ocular icterus [None]
  - Fatigue [None]
  - Hypoxia [None]
  - Oedema peripheral [None]
  - Cachexia [None]
  - Malnutrition [None]
  - Abnormal loss of weight [None]
  - Decreased appetite [None]

NARRATIVE: CASE EVENT DATE: 201504
